FAERS Safety Report 16391372 (Version 1)
Quarter: 2019Q2

REPORT INFORMATION
  Report Type: Spontaneous
  Country: AR (occurrence: AR)
  Receive Date: 20190604
  Receipt Date: 20190604
  Transmission Date: 20190711
  Serious: Yes (Death, Other)
  Sender: FDA-Public Use
  Company Number: AR-ALEXION PHARMACEUTICALS INC.-A201908380

PATIENT
  Age: 15 Year

DRUGS (3)
  1. RITUXIMAB. [Concomitant]
     Active Substance: RITUXIMAB
     Indication: THROMBOTIC MICROANGIOPATHY
     Route: 065
  2. SOLIRIS [Suspect]
     Active Substance: ECULIZUMAB
     Indication: OFF LABEL USE
  3. SOLIRIS [Suspect]
     Active Substance: ECULIZUMAB
     Indication: THROMBOTIC MICROANGIOPATHY
     Route: 065

REACTIONS (8)
  - Large intestine perforation [Fatal]
  - Haemorrhage [Fatal]
  - Gastric haemorrhage [Unknown]
  - Colitis [Unknown]
  - Haematocrit decreased [Unknown]
  - Off label use [Unknown]
  - Necrotising gastritis [Unknown]
  - Sepsis [Fatal]
